FAERS Safety Report 4586807-9 (Version None)
Quarter: 2005Q1

REPORT INFORMATION
  Report Type: 
  Country: None (occurrence: None)
  Receive Date: 20050218
  Receipt Date: 20050209
  Transmission Date: 20050727
  Serious: Yes (Other)
  Sender: FDA-Public Use
  Company Number: 200511056US

PATIENT
  Age: 73 Year
  Sex: Female

DRUGS (4)
  1. KETEK [Suspect]
     Indication: BRONCHITIS
     Dates: start: 20050103, end: 20050108
  2. LEVAQUIN [Concomitant]
     Indication: BRONCHITIS
     Dosage: DOSE: UNK
     Dates: start: 20050118
  3. AGRYLIN [Concomitant]
     Indication: ESSENTIAL THROMBOCYTHAEMIA
     Dosage: DOSE: UNK
  4. SYNTHROID [Concomitant]
     Dosage: DOSE: UNK

REACTIONS (9)
  - DELIRIUM [None]
  - DIZZINESS [None]
  - DRUG INEFFECTIVE [None]
  - NAUSEA [None]
  - PLATELET COUNT DECREASED [None]
  - RASH [None]
  - TONGUE OEDEMA [None]
  - TREMOR [None]
  - WHITE BLOOD CELL COUNT DECREASED [None]
